FAERS Safety Report 6759316-6 (Version None)
Quarter: 2010Q2

REPORT INFORMATION
  Report Type: 
  Country: None (occurrence: None)
  Receive Date: 20100607
  Receipt Date: 20100525
  Transmission Date: 20101027
  Serious: Yes (Other)
  Sender: FDA-Public Use
  Company Number: US-PFIZER INC-2010065455

PATIENT
  Age: 78 Year
  Sex: Female

DRUGS (4)
  1. GLUCOTROL [Suspect]
     Dosage: 40 MG, UNK
  2. METFORMIN HCL [Suspect]
  3. LANTUS [Suspect]
     Indication: TYPE 2 DIABETES MELLITUS
     Dosage: 10 UNITS A DAY
  4. LANTUS [Suspect]
     Dosage: 12 UNITS ONCE A DAY
     Dates: start: 20100401

REACTIONS (3)
  - BLOOD GLUCOSE INCREASED [None]
  - GASTROINTESTINAL DISORDER [None]
  - INCORRECT DOSE ADMINISTERED [None]
